FAERS Safety Report 24594707 (Version 1)
Quarter: 2024Q4

REPORT INFORMATION
  Report Type: Spontaneous
  Country: US (occurrence: US)
  Receive Date: 20241108
  Receipt Date: 20241108
  Transmission Date: 20250115
  Serious: Yes (Other)
  Sender: MERCK
  Company Number: US-009507513-2411USA003019

PATIENT
  Age: 16 Year
  Sex: Male

DRUGS (1)
  1. BRIDION [Suspect]
     Active Substance: SUGAMMADEX
     Dosage: 2 MILLIGRAM/KILOGRAM

REACTIONS (1)
  - Anaphylactic reaction [Recovered/Resolved]
